FAERS Safety Report 16889413 (Version 3)
Quarter: 2020Q3

REPORT INFORMATION
  Report Type: Spontaneous
  Country: US (occurrence: US)
  Receive Date: 20191007
  Receipt Date: 20200812
  Transmission Date: 20201102
  Serious: No
  Sender: FDA-Public Use
  Company Number: US-AMGEN INC.-USASP2019163526

PATIENT
  Age: 37 Year
  Sex: Female

DRUGS (7)
  1. NORCO [Concomitant]
     Active Substance: ACETAMINOPHEN\HYDROCODONE BITARTRATE
     Dosage: UNK
     Dates: start: 20190923
  2. COMPAZINE [Concomitant]
     Active Substance: PROCHLORPERAZINE MALEATE
     Indication: NAUSEA
     Dosage: 5 MILLIGRAM, AS NECESSARY
  3. ZOFRAN [Concomitant]
     Active Substance: ONDANSETRON HYDROCHLORIDE
     Dosage: UNK, AS NECESSARY
  4. AIMOVIG [Suspect]
     Active Substance: ERENUMAB-AOOE
     Indication: MIGRAINE
     Dosage: 140 MILLIGRAM, QMO
     Route: 065
     Dates: start: 20190110
  5. EXCEDRIN MIGRAINE [Concomitant]
     Active Substance: ACETAMINOPHEN\ASPIRIN\CAFFEINE
     Dosage: UNK, AS NECESSARY
  6. CLONAZEPAM. [Concomitant]
     Active Substance: CLONAZEPAM
     Dosage: UNK
  7. AIMOVIG [Suspect]
     Active Substance: ERENUMAB-AOOE
     Dosage: 140 MILLIGRAM, QMO
     Route: 065
     Dates: end: 20190927

REACTIONS (2)
  - Maternal exposure during pregnancy [Unknown]
  - Anaemia [Unknown]

NARRATIVE: CASE EVENT DATE: 2019
